FAERS Safety Report 7760612-4 (Version None)
Quarter: 2011Q3

REPORT INFORMATION
  Report Type: 
  Country: None (occurrence: None)
  Receive Date: 20110919
  Receipt Date: 20110912
  Transmission Date: 20111222
  Serious: Yes (Hospitalization, Other)
  Sender: FDA-Public Use
  Company Number: US-B.I. PHARMACEUTICALS,INC./RIDGEFIELD-2011-BP-19523BP

PATIENT
  Sex: Male

DRUGS (4)
  1. AVAPRO [Concomitant]
     Indication: HYPERTENSION
  2. COUMADIN [Concomitant]
  3. VITAMIN D [Concomitant]
     Indication: PROPHYLAXIS
  4. PRADAXA [Suspect]
     Indication: ATRIAL FIBRILLATION
     Dosage: 300 MG
     Route: 048
     Dates: start: 20110601, end: 20110701

REACTIONS (3)
  - MEMORY IMPAIRMENT [None]
  - CONTUSION [None]
  - CEREBROVASCULAR ACCIDENT [None]
